FAERS Safety Report 13398145 (Version 7)
Quarter: 2018Q1

REPORT INFORMATION
  Report Type: Report from Study
  Country: JP (occurrence: JP)
  Receive Date: 20170403
  Receipt Date: 20180221
  Transmission Date: 20180508
  Serious: Yes (Hospitalization)
  Sender: FDA-Public Use
  Company Number: JP-TAKEDA-2017TJP004993AA

PATIENT
  Age: 23 Year
  Sex: Female
  Weight: 56.3 kg

DRUGS (4)
  1. CELECOX HEXAL [Concomitant]
     Indication: CROHN^S DISEASE
     Dosage: UNK, PRN
     Route: 048
     Dates: start: 20170227, end: 20170227
  2. FEXOFENADINE HYDROCHLORIDE. [Concomitant]
     Active Substance: FEXOFENADINE HYDROCHLORIDE
     Indication: CONJUNCTIVITIS ALLERGIC
     Dosage: 60 MG, BID
     Route: 048
     Dates: start: 20161207
  3. MLN0002 [Suspect]
     Active Substance: VEDOLIZUMAB
     Indication: CROHN^S DISEASE
     Dosage: 300 MG, Q8WEEKS
     Route: 041
     Dates: start: 20160803, end: 20170228
  4. PLACEBO [Suspect]
     Active Substance: UNSPECIFIED INGREDIENT
     Indication: CROHN^S DISEASE
     Dates: start: 20160525, end: 20160706

REACTIONS (2)
  - Crohn^s disease [Recovered/Resolved]
  - Mediastinitis [Recovered/Resolved]

NARRATIVE: CASE EVENT DATE: 20170227
